FAERS Safety Report 8282655 (Version 4)
Quarter: 2013Q2

REPORT INFORMATION
  Report Type: Spontaneous
  Country: US (occurrence: US)
  Receive Date: 20111209
  Receipt Date: 20130529
  Transmission Date: 20140414
  Serious: Yes (Hospitalization)
  Sender: FDA-Public Use
  Company Number: US-ASTRAZENECA-2010SE23160

PATIENT
  Age: 55 Year
  Sex: Female
  Weight: 90.7 kg

DRUGS (8)
  1. PULMICORT RESPULES [Suspect]
     Indication: ASTHMA
     Route: 055
     Dates: start: 2004
  2. LISINOPRIL [Concomitant]
  3. ALLOPURINOL [Concomitant]
  4. ZETALOPRAM [Concomitant]
  5. WARFARIN [Concomitant]
  6. LORATADINE [Concomitant]
  7. RESITIN [Concomitant]
  8. ALBUTEROL [Concomitant]

REACTIONS (10)
  - Deep vein thrombosis [Unknown]
  - Cellulitis [Recovering/Resolving]
  - Thrombosis [Unknown]
  - Dyspnoea [Unknown]
  - Asthma [Unknown]
  - Hypertension [Unknown]
  - Memory impairment [Unknown]
  - Off label use [Unknown]
  - Intentional drug misuse [Unknown]
  - Drug dose omission [Unknown]
